FAERS Safety Report 24379163 (Version 1)
Quarter: 2024Q3

REPORT INFORMATION
  Report Type: Report from Study
  Country: JP (occurrence: JP)
  Receive Date: 20240930
  Receipt Date: 20240930
  Transmission Date: 20241016
  Serious: Yes (Hospitalization)
  Sender: BIOGEN
  Company Number: JP-BIOGEN-2024BI01279964

PATIENT
  Sex: Male

DRUGS (2)
  1. SPINRAZA [Suspect]
     Active Substance: NUSINERSEN
     Indication: Spinal muscular atrophy
     Route: 050
     Dates: start: 20200414
  2. SPINRAZA [Suspect]
     Active Substance: NUSINERSEN
     Route: 050

REACTIONS (4)
  - Pleural thickening [Unknown]
  - Pleural effusion [Unknown]
  - Aspergillus test positive [Unknown]
  - Anaemia [Unknown]
